FAERS Safety Report 10647916 (Version 5)
Quarter: 2015Q1

REPORT INFORMATION
  Report Type: Spontaneous
  Country: JP (occurrence: JP)
  Receive Date: 20141212
  Receipt Date: 20150223
  Transmission Date: 20150720
  Serious: Yes (Other)
  Sender: FDA-Public Use
  Company Number: JP-009507513-1412JPN002781

PATIENT
  Age: 6 Year
  Sex: Male
  Weight: 23 kg

DRUGS (11)
  1. ZOFRAN [Suspect]
     Active Substance: ONDANSETRON HYDROCHLORIDE
     Dosage: 4.5 ML, ONCE A DAY
     Route: 048
     Dates: start: 20141016, end: 20141126
  2. RINDERON V [Concomitant]
     Active Substance: BETAMETHASONE VALERATE
     Dosage: 1 MG, TWICE A DAY
     Route: 048
     Dates: start: 20141113, end: 20141119
  3. RINDERON V [Concomitant]
     Active Substance: BETAMETHASONE VALERATE
     Dosage: 1 MG, TWICE A DAY, EVERY OTHER DAY
     Route: 048
     Dates: start: 20141120, end: 20141125
  4. RINDERON (BETAMETHASONE SODIUM PHOSPHATE) [Suspect]
     Active Substance: BETAMETHASONE SODIUM PHOSPHATE
     Indication: HEADACHE
     Dosage: 2 MG, TWICE A DAY
     Route: 042
     Dates: start: 20141016, end: 20141021
  5. RINDERON V [Concomitant]
     Active Substance: BETAMETHASONE VALERATE
     Dosage: 1.5 MG, TWICE A DAY
     Route: 048
     Dates: start: 20141210
  6. RINDERON (BETAMETHASONE SODIUM PHOSPHATE) [Suspect]
     Active Substance: BETAMETHASONE SODIUM PHOSPHATE
     Indication: NAUSEA
     Dosage: 1 MG, TWICE A DAY
     Route: 042
     Dates: start: 20141022, end: 20141023
  7. RINDERON V [Concomitant]
     Active Substance: BETAMETHASONE VALERATE
     Indication: CEREBRAL OEDEMA MANAGEMENT
     Dosage: 1 MG, TWICE A DAY
     Route: 048
     Dates: start: 20141024, end: 20141105
  8. RINDERON V [Concomitant]
     Active Substance: BETAMETHASONE VALERATE
     Dosage: 2 MG, TWICE A DAY
     Route: 048
     Dates: start: 20141106, end: 20141109
  9. RINDERON V [Concomitant]
     Active Substance: BETAMETHASONE VALERATE
     Dosage: 1.5 MG, TWICE A DAY
     Route: 048
     Dates: start: 20141110, end: 20141112
  10. TEMODAL [Suspect]
     Active Substance: TEMOZOLOMIDE
     Indication: ASTROCYTOMA
     Dosage: 60 MG, ONCE A DAY
     Route: 048
     Dates: start: 20141016, end: 20141126
  11. RINDERON V [Concomitant]
     Active Substance: BETAMETHASONE VALERATE
     Dosage: 2 MG, TWICE A DAY
     Route: 048
     Dates: start: 20141202, end: 20141209

REACTIONS (5)
  - Vomiting [Recovering/Resolving]
  - Nausea [Recovering/Resolving]
  - Intracranial tumour haemorrhage [Unknown]
  - Alopecia [Not Recovered/Not Resolved]
  - Decreased appetite [Not Recovered/Not Resolved]

NARRATIVE: CASE EVENT DATE: 20141105
